FAERS Safety Report 24366904 (Version 3)
Quarter: 2024Q4

REPORT INFORMATION
  Report Type: Spontaneous
  Country: US (occurrence: US)
  Receive Date: 20240926
  Receipt Date: 20241030
  Transmission Date: 20250115
  Serious: Yes (Death, Other)
  Sender: IPSEN BIOPHARMACEUTICALS, INC.
  Company Number: US-IPSEN Group, Research and Development-2024-19236

PATIENT
  Age: 56 Year
  Sex: Female
  Weight: 61.7 kg

DRUGS (25)
  1. IQIRVO [Suspect]
     Active Substance: ELAFIBRANOR
     Indication: Primary biliary cholangitis
     Route: 048
     Dates: start: 20240824
  2. AMMONIUM LACTATE [Concomitant]
     Active Substance: AMMONIUM LACTATE
     Indication: Dry skin
     Dosage: AS NEEDED, DISP: 420 G, RFL: 11
     Route: 061
     Dates: start: 20231113
  3. LIPITOR [Concomitant]
     Active Substance: ATORVASTATIN CALCIUM
     Dosage: NIGHTLY, DISP: 90 TABLET, RFL: 3
     Route: 048
     Dates: start: 20240223
  4. CHOLECALCIFEROL [Concomitant]
     Active Substance: CHOLECALCIFEROL
     Dates: start: 20240202
  5. VITAMIN D3 [Concomitant]
     Active Substance: CHOLECALCIFEROL
     Dosage: 5,000 UNIT, DISP: 90, RFL: 1
     Route: 048
  6. CIPRO [Concomitant]
     Active Substance: CIPROFLOXACIN HYDROCHLORIDE
     Dosage: 600 MG TOTAL, DISP: 14, RFL: 0
     Route: 048
  7. COMFORT EZ [Concomitant]
     Dosage: NEEDLES 33 GAUGE 5/32 NDLE, USE TO INJECT INSULIN
  8. VOLTAREN [Concomitant]
     Active Substance: DICLOFENAC SODIUM
     Dosage: APPLY 4 G TOPICALLY, APPLY TO AFFECTED AREA, DISP: 50 G, RFL: 0
     Dates: start: 20240727
  9. TRULICITY [Concomitant]
     Active Substance: DULAGLUTIDE
     Dosage: 3 MG/O.5 ML, DISP: 4 ML, RFL: O
     Route: 058
     Dates: start: 20240718
  10. ZETIA [Concomitant]
     Active Substance: EZETIMIBE
     Dosage: TAKE 1 TABLET (10 MG TOTAL) BY MOUTH NIGHTLY., DISP: 30 TABLET, RFL: 0
     Dates: start: 20240131
  11. PEPCID [Concomitant]
     Active Substance: FAMOTIDINE
     Dosage: DISP: 28 TABLET, RFL: 0
     Route: 048
     Dates: start: 20240718, end: 20240801
  12. FERROUS SULFATE [Concomitant]
     Active Substance: FERROUS SULFATE
     Dosage: TAKE 1 TABLET (325 MG TOTAL) BY MOUTH, DISP: 30 TABLET, RFL: 2
     Route: 048
     Dates: start: 20231025
  13. GVOKE [Concomitant]
     Active Substance: GLUCAGON
     Indication: Hypoglycaemia
     Dosage: 1 MG/0.2 ML, DISP: 0.4 ML, RFL: 2
  14. HYDRODIURIL [Concomitant]
     Active Substance: HYDROCHLOROTHIAZIDE
     Dosage: DISP: 90 TABLET, RFL: 3
     Route: 048
     Dates: start: 20240613
  15. HYTONE [Concomitant]
     Active Substance: HYDROCORTISONE
     Dosage: DISP: 100 G, RFL: 0
     Route: 061
     Dates: start: 20240718
  16. LANTUS [Concomitant]
     Active Substance: INSULIN GLARGINE
     Dosage: INJECT 45 UNITS UNDER THE SKIN , 100 UNITS/ML
     Dates: start: 20240131
  17. ZESTRIL [Concomitant]
     Active Substance: LISINOPRIL
     Route: 048
     Dates: start: 20240202
  18. MELATONIN [Concomitant]
     Active Substance: MELATONIN
     Dosage: DISP: 30 TABLET, RFL: 11
     Dates: start: 20240223
  19. CORGARD [Concomitant]
     Active Substance: NADOLOL
     Dosage: DISP: 90 TABLET, RFL: 3
     Route: 048
     Dates: start: 20240503
  20. LYRICA [Concomitant]
     Active Substance: PREGABALIN
     Dosage: DISP: 180 CAPSULE, RFL: 3
     Route: 048
     Dates: start: 20240611
  21. VITAMIN B6 [Concomitant]
     Active Substance: PYRIDOXINE HYDROCHLORIDE
     Dosage: TAKE 2 TABLETS (50 MG TOTAL) BY MOUTH DAILY, DISP: 60 TABLET, RFL: 11
     Route: 048
     Dates: start: 20240617
  22. SENNOSIDES [Concomitant]
     Active Substance: SENNOSIDES
     Dosage: DISP: 30 TABLET, RFL: 2
     Route: 048
     Dates: start: 20240424
  23. ACTIGALL [Concomitant]
     Active Substance: URSODIOL
     Dosage: TAKE 3 CAPSULES (900 MG TOTAL) BY MOUTH DAILY., DISP: 270 CAPSULE, RFL: 3
     Dates: start: 20230726, end: 20240821
  24. EFFEXOR [Concomitant]
     Active Substance: VENLAFAXINE HYDROCHLORIDE
     Dosage: TAKE 1 CAPSULE (150 MG TOTAL) B MOUTH DAIL , DIS : 90 CAPSULE, RFL: 3
     Route: 048
     Dates: start: 20240111
  25. JARDIANCE [Concomitant]
     Active Substance: EMPAGLIFLOZIN
     Dates: start: 20240615

REACTIONS (2)
  - Cardiac arrest [Fatal]
  - Loss of consciousness [Unknown]

NARRATIVE: CASE EVENT DATE: 20240824
